FAERS Safety Report 15820186 (Version 1)
Quarter: 2019Q1

REPORT INFORMATION
  Report Type: Report from Study
  Country: MX (occurrence: MX)
  Receive Date: 20190114
  Receipt Date: 20190114
  Transmission Date: 20190417
  Serious: Yes (Death)
  Sender: FDA-Public Use
  Company Number: PHHY2019MX006068

PATIENT
  Sex: Female
  Weight: 62 kg

DRUGS (7)
  1. REVOLADE [Suspect]
     Active Substance: ELTROMBOPAG
     Indication: WHITE BLOOD CELL COUNT DECREASED
  2. LOPRESS [Concomitant]
     Indication: HYPERTENSION
     Dosage: 1 DF, PRN
     Route: 048
     Dates: end: 20181209
  3. REVOLADE [Suspect]
     Active Substance: ELTROMBOPAG
     Indication: PLATELET COUNT DECREASED
     Dosage: 1 DF, (1 IN THE MORNING AND 2 AT LUNCH TIME)
     Route: 048
  4. EUTIROX [Concomitant]
     Active Substance: LEVOTHYROXINE SODIUM
     Indication: THYROID DISORDER
     Dosage: 1 DF, (BEFORE BREAKFAST)
     Route: 048
     Dates: end: 20181209
  5. XARELTO [Concomitant]
     Active Substance: RIVAROXABAN
     Indication: PRODUCT USED FOR UNKNOWN INDICATION
     Dosage: 1 DF, (AT NOON)
     Route: 048
     Dates: end: 20181209
  6. REVOLADE [Suspect]
     Active Substance: ELTROMBOPAG
     Indication: RED BLOOD CELL COUNT DECREASED
  7. LYRICA [Concomitant]
     Active Substance: PREGABALIN
     Indication: ARTHRALGIA
     Dosage: 1 DF, (AT NIGHT)
     Route: 048
     Dates: end: 20181209

REACTIONS (1)
  - Platelet count decreased [Fatal]
